FAERS Safety Report 17674013 (Version 1)
Quarter: 2020Q2

REPORT INFORMATION
  Report Type: Spontaneous
  Country: FR (occurrence: FR)
  Receive Date: 20200415
  Receipt Date: 20200415
  Transmission Date: 20200714
  Serious: Yes (Other)
  Sender: FDA-Public Use
  Company Number: FR-009507513-2004FRA001583

PATIENT
  Age: 66 Year
  Sex: Male
  Weight: 89 kg

DRUGS (15)
  1. CELLCEPT [Concomitant]
     Active Substance: MYCOPHENOLATE MOFETIL\MYCOPHENOLATE MOFETIL HYDROCHLORIDE
     Indication: ORGAN TRANSPLANT
     Dosage: 3000 MG, QD
     Route: 048
     Dates: start: 20100201
  2. HYDROCORTISONE. [Concomitant]
     Active Substance: HYDROCORTISONE
     Indication: ORGAN TRANSPLANT
     Dosage: IN THE MORNING
     Route: 048
     Dates: start: 20200304
  3. CORTANCYL [Concomitant]
     Active Substance: PREDNISONE
     Indication: ORGAN TRANSPLANT
     Dosage: 5 MG IN THE MORNING
     Route: 048
     Dates: start: 20100201, end: 20200304
  4. TARDYFERON B9 (FERROUS SULFATE (+) FOLIC ACID) [Concomitant]
     Active Substance: FERROUS SULFATE\FOLIC ACID
     Indication: ANAEMIA
     Dosage: 1 DOSAGE FORM, QD
     Route: 048
  5. CRESTOR [Suspect]
     Active Substance: ROSUVASTATIN CALCIUM
     Indication: HYPERCHOLESTEROLAEMIA
     Dosage: 1
     Route: 048
     Dates: start: 2011, end: 201701
  6. MICARDIS [Concomitant]
     Active Substance: TELMISARTAN
     Indication: HYPERTENSION
     Dosage: IN THE MORNING
     Route: 048
  7. ALDACTONE [Concomitant]
     Active Substance: SPIRONOLACTONE
     Indication: HYPERTROPHIC CARDIOMYOPATHY
     Dosage: 12.5 MG, QD (IN THE MORNING)
     Route: 048
  8. LASILIX [Concomitant]
     Active Substance: FUROSEMIDE
     Indication: HYPERTROPHIC CARDIOMYOPATHY
     Dosage: IN THE MORNING
     Route: 048
  9. NEORAL [Suspect]
     Active Substance: CYCLOSPORINE
     Indication: ORGAN TRANSPLANT
     Dosage: 120 MILLIGRAM, QD
     Route: 048
     Dates: start: 201612
  10. INEXIUM (ESOMEPRAZOLE MAGNESIUM) [Concomitant]
     Active Substance: ESOMEPRAZOLE MAGNESIUM
     Indication: GASTRITIS
     Dosage: 40 MILLIGRAM, QD
     Route: 048
  11. RINOCLENIL [Concomitant]
     Active Substance: BECLOMETHASONE
     Indication: BRONCHIAL DISORDER
     Dosage: 1
     Route: 055
  12. LIPTRUZET [Suspect]
     Active Substance: ATORVASTATIN CALCIUM\EZETIMIBE
     Indication: HYPERCHOLESTEROLAEMIA
     Dosage: 1
     Route: 048
     Dates: start: 201701
  13. KARDEGIC [Concomitant]
     Active Substance: ASPIRIN DL-LYSINE
     Indication: HYPERTROPHIC CARDIOMYOPATHY
     Dosage: 75 MILLIGRAM, QD
     Route: 048
  14. SYMBICORT [Concomitant]
     Active Substance: BUDESONIDE\FORMOTEROL FUMARATE DIHYDRATE
     Indication: BRONCHIAL DISORDER
     Dosage: 1
     Route: 055
  15. WYSTAMM [Concomitant]
     Active Substance: RUPATADINE FUMARATE
     Indication: SINUSITIS
     Dosage: 10 MILLIGRAM, QD
     Route: 048

REACTIONS (2)
  - Neuropathy peripheral [Not Recovered/Not Resolved]
  - Acute motor-sensory axonal neuropathy [Not Recovered/Not Resolved]

NARRATIVE: CASE EVENT DATE: 2017
